FAERS Safety Report 11437148 (Version 2)
Quarter: 2015Q3

REPORT INFORMATION
  Report Type: Spontaneous
  Country: US (occurrence: US)
  Receive Date: 20150831
  Receipt Date: 20150902
  Transmission Date: 20151125
  Serious: No
  Sender: FDA-Public Use
  Company Number: US-PFIZER INC-2015286607

PATIENT
  Age: 65 Year
  Sex: Female
  Weight: 66 kg

DRUGS (3)
  1. PRISTIQ EXTENDED RELEASE [Suspect]
     Active Substance: DESVENLAFAXINE SUCCINATE
     Dosage: 100 MG, DAILY, TWO 50 MG PILLS IN THE MORNING
     Route: 048
     Dates: start: 201508, end: 20150824
  2. PRISTIQ EXTENDED RELEASE [Suspect]
     Active Substance: DESVENLAFAXINE SUCCINATE
     Indication: DEPRESSION
     Dosage: 100 MG, DAILY, IN THE MORNING
     Route: 048
     Dates: start: 20150810, end: 201508
  3. CORTISOL [Concomitant]
     Active Substance: HYDROCORTISONE
     Dosage: UNK

REACTIONS (4)
  - Intentional product misuse [Recovered/Resolved]
  - Vulvovaginal discomfort [Unknown]
  - Headache [Unknown]
  - Food allergy [Unknown]

NARRATIVE: CASE EVENT DATE: 201508
